FAERS Safety Report 19670372 (Version 1)
Quarter: 2021Q3

REPORT INFORMATION
  Report Type: Spontaneous
  Country: US (occurrence: US)
  Receive Date: 20210806
  Receipt Date: 20210806
  Transmission Date: 20211014
  Serious: Yes (Death, Other)
  Sender: FDA-Public Use
  Company Number: US-SAOL THERAPEUTICS-2020SAO00449

PATIENT
  Age: 78 Year
  Sex: Female
  Weight: 70.3 kg

DRUGS (34)
  1. DENTAGEL [Concomitant]
     Active Substance: SODIUM FLUORIDE
     Dosage: 1 APPLICATION, AT BEDTIME
     Route: 004
     Dates: start: 20200817, end: 20200817
  2. SPIRIVA HANDIHALER CAPSULE [Concomitant]
     Indication: CHRONIC OBSTRUCTIVE PULMONARY DISEASE
     Dosage: 1 CAPSULES, 1X/DAY IN THE MORNING
     Route: 048
     Dates: end: 20200813
  3. MELATONIN [Concomitant]
     Active Substance: MELATONIN
     Indication: INSOMNIA
     Dosage: 3 MG, AS NEEDED AT BEDTIME
     Route: 048
  4. SORE THROAT RELIEF LOZENGE [Concomitant]
     Indication: OROPHARYNGEAL PAIN
  5. LIORESAL [Suspect]
     Active Substance: BACLOFEN
     Dosage: FLEX PATTERN 2 ? SAT?SUN 177.75 ?G, \DAY
     Route: 037
  6. BIOTENE MOISTURIZING MOUTH SOLUTION [Concomitant]
     Indication: DRY MOUTH
     Dosage: 1 DOSAGE UNITS, 2X/DAY
     Route: 048
     Dates: end: 20200813
  7. SENNA [Concomitant]
     Active Substance: SENNA LEAF\SENNOSIDES\SENNOSIDES A AND B
     Indication: CONSTIPATION
     Dosage: 17.2 MG, 2X/DAY
     Route: 048
     Dates: end: 20200813
  8. APAP [Concomitant]
     Active Substance: ACETAMINOPHEN
     Dosage: 2 TABLETS
  9. POLYETHYLENE GLYCOL 3350. [Concomitant]
     Active Substance: POLYETHYLENE GLYCOL 3350
     Indication: CONSTIPATION
     Dosage: 17 G, EVERY 24 HOURS AS NEEDED
     Route: 048
  10. DULCOLAX NOS [Concomitant]
     Active Substance: BISACODYL OR DOCUSATE SODIUM
     Indication: CONSTIPATION
     Dosage: 1 SUPPOSITORY, AS NEEDED EVERY 24 HOURS
     Route: 054
  11. KETACONAZOLE [Concomitant]
     Active Substance: KETOCONAZOLE
     Indication: SEBORRHOEA
     Dosage: 2X/WEEK AS NEEDED
     Route: 061
  12. MORPHINE [Suspect]
     Active Substance: MORPHINE
     Dosage: FLEX PATTERN 1 ? MON?FRI 15.927 ?G, \DAY
     Route: 037
  13. SYSTANE BALANCE SOLUTION [Concomitant]
     Indication: DRY EYE
     Dosage: 1 DROP IN EACH EYE, 2X/DAY
     Route: 047
  14. FLEET ENEMA [Concomitant]
     Active Substance: SODIUM PHOSPHATE, DIBASIC\SODIUM PHOSPHATE, MONOBASIC
     Indication: CONSTIPATION
     Dosage: 1 DOSAGE UNITS, AS NEEDED EVERY 24 HOURS
     Route: 054
  15. GUAIFENESIN. [Concomitant]
     Active Substance: GUAIFENESIN
     Dosage: 800 MG, AS NEEDED EVERY 6 HOURS
     Route: 048
  16. SORE THROAT RELIEF LOZENGE [Concomitant]
     Indication: COUGH
     Dosage: 1 DOSAGE UNITS, EVERY 6 HOURS AS NEEDED
     Route: 048
  17. ZOFRAN ODT [Concomitant]
     Active Substance: ONDANSETRON HYDROCHLORIDE
     Indication: NAUSEA
     Dosage: 1 TABLETS, EVERY 6 HOURS AS NEEDED
     Route: 048
  18. MORPHINE [Suspect]
     Active Substance: MORPHINE
     Dosage: FLEX PATTERN 2 ? SAT?SUN 15.893 ?G, \DAY
  19. DULOXETINE DR [Concomitant]
     Active Substance: DULOXETINE
     Indication: DEPRESSION
     Dosage: 30 MG, 1X/DAY IN THE MORNING
     Route: 048
     Dates: end: 20200813
  20. RUGBY CAL?GEST ANTACID ASSORTED FLAVORS [Concomitant]
     Active Substance: CALCIUM CARBONATE
     Dosage: 1000 MG, EVERY 4 HOURS AS NEEDED
     Route: 048
  21. SALINE NASAL SPRAY SOLUTION [Concomitant]
     Indication: NASAL CONGESTION
     Dosage: 2 SPRAY IN BOTH NOSTRILS AS NEEDED
     Route: 045
  22. VITAMIN D3 [Concomitant]
     Active Substance: CHOLECALCIFEROL
     Dosage: 5000 IU, 1X/DAY IN THE MORNING
     Route: 048
     Dates: end: 20200813
  23. PREVIDENT 5000 DRY MOUTH GEL [Concomitant]
     Dosage: 1 DOSAGE UNITS, 2X/DAY
     Route: 004
     Dates: end: 20200813
  24. NITROSTAT [Concomitant]
     Active Substance: NITROGLYCERIN
     Indication: CHEST PAIN
     Dosage: 0.4 MG, EVERY 5 HOURS AS NEEDED
     Route: 060
  25. DENTAGEL [Concomitant]
     Active Substance: SODIUM FLUORIDE
     Dosage: 1 APPLICATION, AT BEDTIME
     Route: 004
     Dates: end: 20200813
  26. MYRBETRIQ EXTENDED RELEASE 24 HOUR [Concomitant]
     Indication: HYPERTONIC BLADDER
     Dosage: 50 MG, 1X/DAY IN THE MORNING
     Route: 048
     Dates: end: 20200813
  27. RUGBY CAL?GEST ANTACID ASSORTED FLAVORS [Concomitant]
     Active Substance: CALCIUM CARBONATE
     Indication: DYSPEPSIA
     Dosage: 500 MG, EVERY 4 HOURS AS NEEDED
     Route: 048
  28. IPRATROPIUM?ALBUTEROL [Concomitant]
     Active Substance: ALBUTEROL\IPRATROPIUM
     Indication: DYSPNOEA
     Dosage: 3 ML, EVERY 6 HOURS AS AS NEEDED
  29. MILK OF MAGNESIA [Concomitant]
     Active Substance: MAGNESIUM HYDROXIDE
     Indication: CONSTIPATION
     Dosage: 30 ML, AS NEEDED IF NO BM ON 3RD DAY
     Route: 048
  30. NATURAL BALANCE TEARS SOLUTION [Concomitant]
     Indication: DRY EYE
     Dosage: 1 GTT, IN EACH EYE, EVERY 1 HOUR AS NEEDED
     Route: 047
  31. LIORESAL [Suspect]
     Active Substance: BACLOFEN
     Dosage: FLEX PATTERN 1 ? MON?FRI 178.13 ?G, \DAY
     Route: 037
  32. LISINOPRIL. [Concomitant]
     Active Substance: LISINOPRIL
     Indication: ESSENTIAL HYPERTENSION
     Dosage: 2.5 MG, 1X/DAY IN THE MORNING
     Route: 048
     Dates: end: 20200813
  33. IPRATROPIUM?ALBUTEROL [Concomitant]
     Active Substance: ALBUTEROL\IPRATROPIUM
     Indication: WHEEZING
  34. ZOFRAN ODT [Concomitant]
     Active Substance: ONDANSETRON HYDROCHLORIDE
     Indication: VOMITING

REACTIONS (4)
  - Cerebrovascular accident [Unknown]
  - Death [Fatal]
  - Pain [Not Recovered/Not Resolved]
  - Weight decreased [Unknown]

NARRATIVE: CASE EVENT DATE: 20200802
